FAERS Safety Report 9924126 (Version 1)
Quarter: 2014Q1

REPORT INFORMATION
  Report Type: Spontaneous
  Country: US (occurrence: US)
  Receive Date: 20140226
  Receipt Date: 20140226
  Transmission Date: 20141002
  Serious: Yes (Hospitalization)
  Sender: FDA-Public Use
  Company Number: US-BEH-2014040708

PATIENT
  Age: 64 Year
  Sex: Female
  Weight: 54 kg

DRUGS (14)
  1. ZEMAIRA [Suspect]
     Indication: ENZYME ABNORMALITY
     Dosage: 988 MG VIAL
     Route: 042
  2. DIPHENHYDRAMINE [Concomitant]
  3. HEPARIN [Concomitant]
     Dosage: 100 UNIT/ML
  4. NORMAL SALINE [Concomitant]
  5. EPIPEN [Concomitant]
  6. WOMENS MULTI [Concomitant]
  7. FLUCONAZOLE [Concomitant]
  8. GUAIFENESIN AC [Concomitant]
     Route: 048
  9. AMOXICILLIN [Concomitant]
  10. SPIRIVA [Concomitant]
  11. ADVAIR [Concomitant]
     Dosage: 250-50 DISKUS
     Route: 055
  12. IBUPROFEN [Concomitant]
  13. VENTOLIN HFA [Concomitant]
     Dosage: 90 MCG
     Route: 055
  14. ASPIRIN EC [Concomitant]
     Route: 048

REACTIONS (1)
  - Respiratory distress [Unknown]
